FAERS Safety Report 9700536 (Version 1)
Quarter: 2013Q4

REPORT INFORMATION
  Report Type: Spontaneous
  Country: US (occurrence: US)
  Receive Date: 20131121
  Receipt Date: 20131121
  Transmission Date: 20140711
  Serious: Yes (Other)
  Sender: FDA-Public Use
  Company Number: PHEH2013US024025

PATIENT
  Age: 71 Year
  Sex: Male

DRUGS (3)
  1. LOTREL [Suspect]
     Dosage: UNK UKN, UNK
  2. INLYTA [Suspect]
     Indication: METASTASES TO KIDNEY
     Dosage: 5 MG, BID
     Route: 048
     Dates: end: 20131101
  3. OMEPRAZOLE [Concomitant]
     Indication: GASTROOESOPHAGEAL REFLUX DISEASE
     Dosage: 20 MG, DAILY
     Route: 048
     Dates: start: 20101209

REACTIONS (2)
  - Clostridium difficile colitis [Recovering/Resolving]
  - Drug hypersensitivity [Unknown]
